FAERS Safety Report 13490958 (Version 3)
Quarter: 2017Q2

REPORT INFORMATION
  Report Type: Report from Study
  Country: None (occurrence: US)
  Receive Date: 20170427
  Receipt Date: 20170620
  Transmission Date: 20170830
  Serious: Yes (Hospitalization, Other)
  Sender: FDA-Public Use
  Company Number: US-ABBVIE-17K-163-1901303-00

PATIENT
  Sex: Female
  Weight: 44.49 kg

DRUGS (7)
  1. LISINOPRIL. [Concomitant]
     Active Substance: LISINOPRIL
     Indication: HYPERTENSION
  2. AMLODIPINE [Concomitant]
     Active Substance: AMLODIPINE BESYLATE
     Indication: HYPERTENSION
  3. VITAMIN D [Concomitant]
     Active Substance: CHOLECALCIFEROL
     Indication: PRODUCT USED FOR UNKNOWN INDICATION
  4. HUMIRA [Suspect]
     Active Substance: ADALIMUMAB
     Route: 058
     Dates: start: 201507, end: 20170320
  5. LORAZEPAM. [Concomitant]
     Active Substance: LORAZEPAM
     Indication: ANXIETY
  6. HUMIRA [Suspect]
     Active Substance: ADALIMUMAB
     Indication: CROHN^S DISEASE
     Route: 058
     Dates: start: 2008, end: 201409
  7. ASPIRIN. [Concomitant]
     Active Substance: ASPIRIN
     Indication: PRODUCT USED FOR UNKNOWN INDICATION

REACTIONS (20)
  - Gastrointestinal stoma complication [Recovered/Resolved]
  - Skin discolouration [Recovered/Resolved]
  - Bursitis [Recovered/Resolved]
  - Influenza [Recovered/Resolved]
  - Post procedural infection [Recovered/Resolved with Sequelae]
  - Post procedural complication [Not Recovered/Not Resolved]
  - Colostomy [Unknown]
  - Stoma site haemorrhage [Unknown]
  - Stoma site abscess [Recovering/Resolving]
  - Tendonitis [Recovered/Resolved]
  - Impaired healing [Unknown]
  - Impaired healing [Not Recovered/Not Resolved]
  - Stomal hernia [Not Recovered/Not Resolved]
  - Raynaud^s phenomenon [Not Recovered/Not Resolved]
  - Female genital tract fistula [Recovered/Resolved]
  - Limb operation [Recovered/Resolved with Sequelae]
  - Hepatic cyst [Not Recovered/Not Resolved]
  - Gastroenterostomy [Unknown]
  - Renal impairment [Not Recovered/Not Resolved]
  - Dehydration [Recovered/Resolved]

NARRATIVE: CASE EVENT DATE: 2010
